FAERS Safety Report 13003036 (Version 2)
Quarter: 2017Q1

REPORT INFORMATION
  Report Type: Spontaneous
  Country: PT (occurrence: PT)
  Receive Date: 20161206
  Receipt Date: 20170131
  Transmission Date: 20170428
  Serious: Yes (Other)
  Sender: FDA-Public Use
  Company Number: PT-ASTRAZENECA-2016SF28193

PATIENT
  Age: 12 Year
  Sex: Female

DRUGS (1)
  1. SYMBICORT [Suspect]
     Active Substance: BUDESONIDE\FORMOTEROL FUMARATE DIHYDRATE
     Indication: ASTHMA
     Dosage: 160/4.5 UG, ONE INHALATION IN THE MORNING AND ONE INHALATION AT NIGHT
     Route: 055

REACTIONS (4)
  - Nasopharyngitis [Unknown]
  - Device malfunction [Unknown]
  - Drug dose omission [Unknown]
  - Asthmatic crisis [Unknown]
